FAERS Safety Report 9215356 (Version 1)
Quarter: 2013Q2

REPORT INFORMATION
  Report Type: Other
  Country: SE (occurrence: SE)
  Receive Date: 20130405
  Receipt Date: 20130405
  Transmission Date: 20140414
  Serious: Yes (Other)
  Sender: FDA-Public Use
  Company Number: SE-NICOBRDEVP-2013-06194

PATIENT
  Age: 79 Year
  Sex: Male

DRUGS (6)
  1. DOXAZOSIN MESYLATE (UNKNOWN) [Suspect]
     Indication: DYSURIA
     Dosage: 4 MG, DAILY
     Route: 048
     Dates: end: 20121123
  2. ARICEPT [Concomitant]
     Indication: PRODUCT USED FOR UNKNOWN INDICATION
     Dosage: UNK, UNKNOWN
     Route: 065
  3. DONEPEZIL [Concomitant]
     Indication: PRODUCT USED FOR UNKNOWN INDICATION
     Dosage: UNK, UNKNOWN
     Route: 065
  4. NITROLINGUAL [Concomitant]
     Indication: PRODUCT USED FOR UNKNOWN INDICATION
     Dosage: UNK, UNKNOWN
     Route: 065
  5. BICALUTAMID SANDOZ [Concomitant]
     Indication: PRODUCT USED FOR UNKNOWN INDICATION
     Dosage: UNK, UNKNOWN
     Route: 065
  6. VOLTAREN                           /00372301/ [Concomitant]
     Indication: PRODUCT USED FOR UNKNOWN INDICATION
     Dosage: UNK, UNKNOWN
     Route: 065

REACTIONS (1)
  - Atrioventricular block [Unknown]
